FAERS Safety Report 5488640-2 (Version None)
Quarter: 2007Q4

REPORT INFORMATION
  Report Type: 
  Country: None (occurrence: None)
  Receive Date: 20071017
  Receipt Date: 20070216
  Transmission Date: 20080405
  Serious: No
  Sender: FDA-Public Use
  Company Number: A0639883A

PATIENT
  Sex: Female

DRUGS (1)
  1. CEFUROXIME [Suspect]
     Indication: DRUG USE FOR UNKNOWN INDICATION
     Route: 065
     Dates: start: 20070214

REACTIONS (1)
  - DRUG ADMINISTRATION ERROR [None]
